FAERS Safety Report 5443492-1 (Version None)
Quarter: 2007Q3

REPORT INFORMATION
  Report Type: 
  Country: None (occurrence: None)
  Receive Date: 20070905
  Receipt Date: 20070824
  Transmission Date: 20080115
  Serious: Yes (Hospitalization)
  Sender: FDA-Public Use
  Company Number: CH-ROCHE-513401

PATIENT
  Age: 35 Year
  Sex: Male

DRUGS (3)
  1. VALIUM [Suspect]
     Indication: MENTAL DISORDER
     Dosage: INDICATION: MENTAL AND BEHAVIOURAL DISORDERS DUE TO MULTIPLE DRUG USE AN.
     Route: 048
     Dates: start: 20070423, end: 20070424
  2. SUBUTEX [Suspect]
     Indication: MENTAL DISORDER
     Dosage: INDICATION: MENTAL AND BEHAVIOURAL DISORDERS DUE TO MULTIPLE DRUG USE AN.
     Route: 060
     Dates: start: 20070424
  3. MEFENACID [Suspect]
     Indication: MENTAL DISORDER
     Dosage: INDICATION: MENTAL AND BEHAVIOURAL DISORDERS DUE TO MULTIPLE DRUG USE AN.
     Route: 048
     Dates: start: 20070424

REACTIONS (3)
  - BRADYCARDIA [None]
  - LOSS OF CONSCIOUSNESS [None]
  - RESPIRATORY DEPRESSION [None]
